FAERS Safety Report 23507016 (Version 1)
Quarter: 2024Q1

REPORT INFORMATION
  Report Type: Other
  Country: CA (occurrence: CA)
  Receive Date: 20240209
  Receipt Date: 20240209
  Transmission Date: 20240410
  Serious: Yes (Other)
  Sender: FDA-Public Use
  Company Number: CA-GLENMARK PHARMACEUTICALS-2024GMK088824

PATIENT

DRUGS (4)
  1. GABAPENTIN [Suspect]
     Active Substance: GABAPENTIN
     Indication: Product used for unknown indication
     Dosage: 900 MILLIGRAM, QD (EVERY 1 DAY)
     Route: 065
  2. NALTREXONE [Concomitant]
     Active Substance: NALTREXONE
     Indication: Product used for unknown indication
     Dosage: 25 MILLIGRAM, QD (EVERY 1 DAY)
     Route: 065
  3. NALTREXONE [Concomitant]
     Active Substance: NALTREXONE
     Dosage: 50 MILLIGRAM, QD (EVERY 1 DAY)
     Route: 065
  4. NALTREXONE [Concomitant]
     Active Substance: NALTREXONE
     Dosage: 100 MILLIGRAM, QD (EVERY 1 DAY)
     Route: 065

REACTIONS (1)
  - Sedation [Unknown]
